FAERS Safety Report 20379824 (Version 2)
Quarter: 2022Q1

REPORT INFORMATION
  Report Type: Spontaneous
  Country: FR (occurrence: FR)
  Receive Date: 20220126
  Receipt Date: 20220207
  Transmission Date: 20220423
  Serious: Yes (Hospitalization, Other)
  Sender: FDA-Public Use
  Company Number: FR-ANIPHARMA-2022-FR-000019

PATIENT
  Age: 91 Year
  Sex: Female

DRUGS (12)
  1. CANDESARTAN CILEXETIL [Suspect]
     Active Substance: CANDESARTAN CILEXETIL
     Indication: Hypertension
     Dosage: 16 MG DAILY
     Route: 048
     Dates: end: 20211213
  2. LACTULOSE [Concomitant]
     Active Substance: LACTULOSE
     Dosage: 1 SACHET, 2/D
     Route: 065
  3. DAFALGAN [Concomitant]
     Active Substance: ACETAMINOPHEN
     Dosage: 1 G IF PAIN
     Route: 065
  4. VITAMIN D [Concomitant]
     Active Substance: VITAMIN D NOS
     Dosage: 80,000 1/MONTH FOR 3 MONTHS THEN, 50,000 1/MONTH, FOR LIFE
     Route: 065
  5. ESIDREX [Suspect]
     Active Substance: HYDROCHLOROTHIAZIDE
     Dosage: 12.5 MG DAILY
     Route: 048
     Dates: end: 20211213
  6. ROSUVASTATIN [Concomitant]
     Active Substance: ROSUVASTATIN
     Dosage: 10 MG DAILY
     Route: 048
  7. KARDEGIC [Concomitant]
     Active Substance: ASPIRIN DL-LYSINE
     Dosage: 75 MG BID
     Route: 048
  8. SINGULAIR [Concomitant]
     Active Substance: MONTELUKAST SODIUM
     Dosage: 10 MG DAILY
     Route: 048
  9. SERETIDE [Concomitant]
     Active Substance: FLUTICASONE PROPIONATE\SALMETEROL XINAFOATE
     Dosage: 100 UG/INHAL DAILY
     Route: 055
  10. PRISTINAMYCIN [Concomitant]
     Active Substance: PRISTINAMYCIN
     Dosage: 6 DF DAILY
     Route: 048
     Dates: start: 20211207, end: 20211210
  11. CLARITHROMYCIN [Concomitant]
     Active Substance: CLARITHROMYCIN
     Dosage: 2 DF DAILY
     Route: 048
     Dates: start: 20211210, end: 20211213
  12. FUROSEMIDE [Concomitant]
     Active Substance: FUROSEMIDE
     Dosage: 40 MG DAILY
     Route: 065

REACTIONS (3)
  - Hyponatraemia [Unknown]
  - Inappropriate antidiuretic hormone secretion [Unknown]
  - Chronic obstructive pulmonary disease [Unknown]

NARRATIVE: CASE EVENT DATE: 20211213
